FAERS Safety Report 9704064 (Version 1)
Quarter: 2013Q4

REPORT INFORMATION
  Report Type: Spontaneous
  Country: BR (occurrence: BR)
  Receive Date: 20131122
  Receipt Date: 20131122
  Transmission Date: 20140711
  Serious: Yes (Other)
  Sender: FDA-Public Use
  Company Number: BR-PFIZER INC-2013333695

PATIENT
  Age: 66 Year
  Sex: Female

DRUGS (1)
  1. CHAMPIX [Suspect]
     Indication: SMOKING CESSATION THERAPY
     Dosage: ONE TABLET, TWICE DAILY
     Route: 048
     Dates: start: 20121003, end: 201301

REACTIONS (1)
  - Chronic obstructive pulmonary disease [Not Recovered/Not Resolved]
